FAERS Safety Report 6708953-3 (Version None)
Quarter: 2010Q2

REPORT INFORMATION
  Report Type: 
  Country: None (occurrence: None)
  Receive Date: 20100504
  Receipt Date: 20100420
  Transmission Date: 20101027
  Serious: Yes (Hospitalization)
  Sender: FDA-Public Use
  Company Number: PHHY2010US14276

PATIENT
  Sex: Male
  Weight: 85.1 kg

DRUGS (3)
  1. EXJADE [Suspect]
     Indication: IRON METABOLISM DISORDER
     Dosage: 1750 MG/DAILY
     Route: 048
     Dates: end: 20100222
  2. EXJADE [Suspect]
     Dosage: 250 MG (DAILY DOSE OF 1750MG)
     Route: 048
     Dates: end: 20100406
  3. EXJADE [Suspect]
     Dosage: 1000 MG
     Route: 048
     Dates: start: 20100421

REACTIONS (3)
  - BLOOD CREATININE INCREASED [None]
  - HAEMOLYTIC ANAEMIA [None]
  - SPLEEN DISORDER [None]
